FAERS Safety Report 15340017 (Version 2)
Quarter: 2018Q4

REPORT INFORMATION
  Report Type: Spontaneous
  Country: JP (occurrence: JP)
  Receive Date: 20180831
  Receipt Date: 20181116
  Transmission Date: 20190204
  Serious: Yes (Hospitalization)
  Sender: FDA-Public Use
  Company Number: JP-LPDUSPRD-20181601

PATIENT
  Age: 39 Year
  Sex: Female

DRUGS (3)
  1. TRANSAMIN [Suspect]
     Active Substance: TRANEXAMIC ACID
     Dosage: UNKNOWN
     Route: 065
  2. CARBAZOCHROME SODIUM SULFONATE [Concomitant]
     Active Substance: CARBAZOCHROME SODIUM SULFONATE
     Dosage: UNKNOWN
     Route: 065
  3. CHLORMADINONE ACETATE [Concomitant]
     Active Substance: CHLORMADINONE ACETATE
     Dosage: UNKNOWN
     Route: 065

REACTIONS (2)
  - Maternal exposure during pregnancy [Unknown]
  - Uterine rupture [Recovering/Resolving]
